FAERS Safety Report 7260706-6 (Version None)
Quarter: 2011Q1

REPORT INFORMATION
  Report Type: 
  Country: None (occurrence: None)
  Receive Date: 20110130
  Receipt Date: 20101222
  Transmission Date: 20110831
  Serious: No
  Sender: FDA-Public Use
  Company Number: US-ABBOTT-10P-163-0693292-00

PATIENT
  Sex: Female
  Weight: 68.1 kg

DRUGS (4)
  1. CELLCEPT [Concomitant]
     Indication: SYSTEMIC LUPUS ERYTHEMATOSUS
  2. HYDROXYCHLOROQUINE [Concomitant]
     Indication: SYSTEMIC LUPUS ERYTHEMATOSUS
  3. HUMIRA [Suspect]
     Indication: SYSTEMIC LUPUS ERYTHEMATOSUS
     Dates: start: 20101101, end: 20101201
  4. PREDNISONE [Concomitant]
     Indication: SYSTEMIC LUPUS ERYTHEMATOSUS

REACTIONS (2)
  - PAIN [None]
  - ARTHRALGIA [None]
